FAERS Safety Report 20818583 (Version 2)
Quarter: 2023Q2

REPORT INFORMATION
  Report Type: Report from Study
  Country: CN (occurrence: CN)
  Receive Date: 20220512
  Receipt Date: 20230504
  Transmission Date: 20230722
  Serious: Yes (Hospitalization)
  Sender: FDA-Public Use
  Company Number: CN-PFIZER INC-202200651069

PATIENT
  Age: 69 Year
  Sex: Male
  Weight: 66 kg

DRUGS (6)
  1. EPIRUBICIN HYDROCHLORIDE [Suspect]
     Active Substance: EPIRUBICIN HYDROCHLORIDE
     Dosage: UNK
  2. CAMRELIZUMAB [Suspect]
     Active Substance: CAMRELIZUMAB
     Indication: Hepatic cancer
     Dosage: 200 MG, ONCE
     Route: 042
     Dates: start: 20220210, end: 20220210
  3. APATINIB [Suspect]
     Active Substance: APATINIB
     Indication: Hepatic cancer
     Dosage: 0.25 G, 1X/DAY
     Route: 048
     Dates: start: 20220210
  4. AMINOPHENAZONE/CAFFEINE/CHLORPHENAMINE MALEATE/PARACETAMOL [Concomitant]
     Indication: Embolism
     Dosage: 1 TABLET, ONCE
     Route: 048
     Dates: start: 20211223, end: 20211223
  5. INDOMETHACIN [Concomitant]
     Active Substance: INDOMETHACIN
     Indication: Embolism
     Dosage: 30 MG, ONCE ANAL INSERTION
     Route: 054
     Dates: start: 20211223, end: 20211223
  6. TRAMADOL [Concomitant]
     Active Substance: TRAMADOL
     Indication: Embolism
     Dosage: 100 MG, ONCE
     Route: 030
     Dates: start: 20211223, end: 20211223

REACTIONS (2)
  - Liver abscess [Recovered/Resolved]
  - Sepsis [Recovered/Resolved]

NARRATIVE: CASE EVENT DATE: 20211224
